FAERS Safety Report 21315069 (Version 6)
Quarter: 2023Q1

REPORT INFORMATION
  Report Type: Spontaneous
  Country: US (occurrence: US)
  Receive Date: 20220909
  Receipt Date: 20230118
  Transmission Date: 20230417
  Serious: No
  Sender: FDA-Public Use
  Company Number: US-Calliditas-2022CAL00301

PATIENT
  Age: 55 Year
  Sex: Male

DRUGS (1)
  1. TARPEYO [Suspect]
     Active Substance: BUDESONIDE
     Indication: IgA nephropathy
     Dosage: 16 MG (4 MG CAPSULES) ONCE DAILY
     Route: 048
     Dates: start: 20220730

REACTIONS (8)
  - Peripheral swelling [Unknown]
  - Weight increased [Recovering/Resolving]
  - Swelling face [Unknown]
  - Dyspnoea [Unknown]
  - Asthma [Recovering/Resolving]
  - Prescribed underdose [Not Recovered/Not Resolved]
  - Swelling [Recovering/Resolving]
  - Laboratory test abnormal [Unknown]
